FAERS Safety Report 16731249 (Version 4)
Quarter: 2022Q3

REPORT INFORMATION
  Report Type: Spontaneous
  Country: RO (occurrence: RO)
  Receive Date: 20190822
  Receipt Date: 20220829
  Transmission Date: 20221026
  Serious: Yes (Death, Life-Threatening, Hospitalization, Other)
  Sender: FDA-Public Use
  Company Number: RO-MLMSERVICE-20190813-1896524-1

PATIENT
  Age: 66 Year
  Sex: Female
  Weight: 78 kg

DRUGS (19)
  1. DOXORUBICIN HYDROCHLORIDE [Suspect]
     Active Substance: DOXORUBICIN HYDROCHLORIDE
     Indication: B precursor type acute leukaemia
     Dosage: 80 MG, UNK
     Route: 042
     Dates: start: 20170116
  2. MEROPENEM [Suspect]
     Active Substance: MEROPENEM
     Indication: Urinary tract infection enterococcal
     Dosage: 1 DF, 3X/DAY
     Route: 042
     Dates: start: 20170212
  3. METHYLPREDNISOLONE SODIUM SUCCINATE [Suspect]
     Active Substance: METHYLPREDNISOLONE SODIUM SUCCINATE
     Dosage: 50 MG, 2X/DAY (12 HOURS INTERVAL FOR 6 DOSES)
     Route: 042
     Dates: start: 20170203, end: 20170205
  4. AMPICILLIN [Suspect]
     Active Substance: AMPICILLIN
     Indication: Urinary tract infection enterococcal
     Dosage: 2 DF, 1X/DAY
     Route: 042
     Dates: start: 20170203, end: 20170211
  5. CYTARABINE [Suspect]
     Active Substance: CYTARABINE
     Indication: B precursor type acute leukaemia
     Dosage: 4 G, 2X/DAY (12 HOURS INTERVAL)
     Route: 042
     Dates: start: 20170204, end: 20170205
  6. CYTARABINE [Suspect]
     Active Substance: CYTARABINE
     Indication: B precursor type acute leukaemia
     Dosage: 25 MG, UNK
     Route: 039
     Dates: start: 20170130
  7. DEXAMETHASONE [Suspect]
     Active Substance: DEXAMETHASONE
     Indication: B precursor type acute leukaemia
     Dosage: 1 GTT, UNK (1 DROP PER HOUR)
     Route: 031
     Dates: start: 20170204, end: 20170207
  8. DEXAMETHASONE [Suspect]
     Active Substance: DEXAMETHASONE
     Indication: B precursor type acute leukaemia
     Dosage: 5 DF, DAILY (5 VIALS/DAY)
     Route: 042
     Dates: start: 20170113, end: 20170116
  9. DEXAMETHASONE [Suspect]
     Active Substance: DEXAMETHASONE
     Dosage: 5 DF, DAILY (5 VIALS/DAY)
     Route: 042
     Dates: start: 20170123, end: 20170126
  10. CYCLOPHOSPHAMIDE [Suspect]
     Active Substance: CYCLOPHOSPHAMIDE
     Indication: B precursor type acute leukaemia
     Dosage: 340 MG, 2X/DAY (12 HOURS INTERVAL)
     Route: 042
     Dates: start: 20170113, end: 20170115
  11. IMIPENEM [Suspect]
     Active Substance: IMIPENEM
     Indication: Urinary tract infection enterococcal
     Dosage: 1 DF, 4X/DAY
     Route: 042
     Dates: start: 20170213, end: 20170226
  12. LINEZOLID [Suspect]
     Active Substance: LINEZOLID
     Indication: Urinary tract infection enterococcal
     Dosage: 1 DF, 2X/DAY
     Route: 042
     Dates: start: 20170212, end: 20170226
  13. METHOTREXATE [Suspect]
     Active Substance: METHOTREXATE
     Indication: B precursor type acute leukaemia
     Dosage: 1375 MG, UNK (22 HOURS PERFUSION)
     Route: 042
     Dates: start: 20170203, end: 2017
  14. METHOTREXATE [Suspect]
     Active Substance: METHOTREXATE
     Dosage: 345 MG, UNK (DURING 2 HOURS)
     Route: 042
     Dates: start: 20170203, end: 2017
  15. METHOTREXATE [Suspect]
     Active Substance: METHOTREXATE
     Dosage: 15 MG, UNK
     Route: 037
     Dates: start: 20170203, end: 2017
  16. RIFAXIMIN [Suspect]
     Active Substance: RIFAXIMIN
     Dosage: 3 DF, 2X/DAY
     Route: 048
     Dates: start: 20170203, end: 20170226
  17. SULFAMETHOXAZOLE\TRIMETHOPRIM [Suspect]
     Active Substance: SULFAMETHOXAZOLE\TRIMETHOPRIM
     Dosage: 4 DF, ALTERNATE DAY (400/80MG)
     Route: 048
     Dates: start: 20170205, end: 20170213
  18. VINCRISTINE [Suspect]
     Active Substance: VINCRISTINE
     Indication: B precursor type acute leukaemia
     Dosage: 2 DF, DAILY (2 VIALS/DAY)
     Route: 042
     Dates: start: 20170115, end: 20170123
  19. VINCRISTINE [Suspect]
     Active Substance: VINCRISTINE
     Dosage: 2 DF, DAILY (2 VIALS/DAY)
     Dates: start: 20170115, end: 201701

REACTIONS (5)
  - Acute hepatic failure [Fatal]
  - Hepatic infarction [Fatal]
  - Aplasia [Recovering/Resolving]
  - Clostridium difficile colitis [Recovered/Resolved]
  - Hepatotoxicity [Not Recovered/Not Resolved]

NARRATIVE: CASE EVENT DATE: 20170101
